FAERS Safety Report 7640979-8 (Version None)
Quarter: 2011Q3

REPORT INFORMATION
  Report Type: 
  Country: None (occurrence: None)
  Receive Date: 20110728
  Receipt Date: 20110722
  Transmission Date: 20111222
  Serious: Yes (Death)
  Sender: FDA-Public Use
  Company Number: DK-ROXANE LABORATORIES, INC.-2011-RO-01041RO

PATIENT

DRUGS (1)
  1. AMLODIPINE [Suspect]

REACTIONS (1)
  - TOXICITY TO VARIOUS AGENTS [None]
